FAERS Safety Report 8800910 (Version 1)
Quarter: 2012Q4

REPORT INFORMATION
  Report Type: 
  Country: ES (occurrence: ES)
  Receive Date: 20120921
  Receipt Date: 20120921
  Transmission Date: 20130627
  Serious: Yes (Other)
  Sender: FDA-Public Use
  Company Number: ES-PFIZER INC-2012230782

PATIENT
  Age: 71 Year
  Sex: Male

DRUGS (10)
  1. ZELDOX [Suspect]
     Indication: SCHIZOPHRENIA, DISORGANISED TYPE
     Dosage: 60 mg, 2x/day
     Route: 048
     Dates: start: 2010
  2. ZYPREXA [Suspect]
     Indication: SCHIZOPHRENIA, DISORGANISED TYPE
     Dosage: 2.5 mg, 1x/day
     Route: 048
     Dates: start: 2012
  3. ALFUZOSIN [Concomitant]
     Dosage: UNK
     Route: 048
  4. LORAZEPAM [Concomitant]
     Dosage: 1 mg, 4x/day
     Route: 048
  5. TAMSULOSIN [Concomitant]
     Dosage: UNK
     Route: 048
  6. FINASTERIDE [Concomitant]
     Dosage: UNK
     Route: 048
  7. AMANTADINE [Concomitant]
     Dosage: 100 mg, 2x/day
     Route: 048
  8. FOLIC ACID [Concomitant]
     Dosage: UNK
     Route: 048
  9. AKINETON [Concomitant]
     Dosage: 2 mg, 1x/day
     Route: 048
  10. DEPRAX [Concomitant]
     Dosage: 50 mg, 2x/day
     Route: 048

REACTIONS (1)
  - Parkinsonism [Not Recovered/Not Resolved]
